FAERS Safety Report 6976544-5 (Version None)
Quarter: 2010Q3

REPORT INFORMATION
  Report Type: 
  Country: None (occurrence: None)
  Receive Date: 20100910
  Receipt Date: 20100824
  Transmission Date: 20110219
  Serious: No
  Sender: FDA-Public Use
  Company Number: US-PFIZER INC-2010106367

PATIENT
  Age: 30 Year
  Sex: Male

DRUGS (2)
  1. LYRICA [Suspect]
     Indication: DIABETIC NEUROPATHY
     Dosage: UNK
     Route: 048
  2. LYRICA [Suspect]
     Dosage: 50 MG, DAILY
     Route: 048
     Dates: start: 20100824

REACTIONS (2)
  - NAUSEA [None]
  - SOMNOLENCE [None]
